FAERS Safety Report 10681937 (Version 2)
Quarter: 2015Q1

REPORT INFORMATION
  Report Type: Spontaneous
  Country: US (occurrence: US)
  Receive Date: 20141230
  Receipt Date: 20150330
  Transmission Date: 20150720
  Serious: Yes (Other)
  Sender: FDA-Public Use
  Company Number: US-BAYER-2014-190839

PATIENT
  Age: 21 Year
  Sex: Female
  Weight: 144 kg

DRUGS (1)
  1. MIRENA [Suspect]
     Active Substance: LEVONORGESTREL
     Indication: CONTRACEPTION
     Dosage: 20 MCG/24HR, CONT
     Route: 015
     Dates: start: 20081201, end: 20110501

REACTIONS (6)
  - Injury [None]
  - Pain [None]
  - Depression [None]
  - Abdominal pain lower [None]
  - Emotional distress [None]
  - Embedded device [None]

NARRATIVE: CASE EVENT DATE: 2010
